FAERS Safety Report 18733297 (Version 2)
Quarter: 2021Q1

REPORT INFORMATION
  Report Type: Report from Study
  Country: US (occurrence: US)
  Receive Date: 20210113
  Receipt Date: 20210114
  Transmission Date: 20210419
  Serious: Yes (Death, Other)
  Sender: FDA-Public Use
  Company Number: US-GILEAD-2021-0512152

PATIENT
  Age: 79 Year
  Sex: Female

DRUGS (24)
  1. AMBRISENTAN [Suspect]
     Active Substance: AMBRISENTAN
     Indication: PULMONARY ARTERIAL HYPERTENSION
     Dosage: 10 MG, QD
     Route: 065
     Dates: start: 20180112, end: 20210103
  2. SILDENAFIL. [Suspect]
     Active Substance: SILDENAFIL
     Indication: PULMONARY ARTERIAL HYPERTENSION
     Dosage: 20 MG, TID
     Route: 065
     Dates: start: 20180601
  3. BRIMONIDINE [Concomitant]
     Active Substance: BRIMONIDINE TARTRATE
  4. KAPSPARGO SPRINKLE [Concomitant]
  5. LIPITOR [Concomitant]
     Active Substance: ATORVASTATIN CALCIUM
  6. OMEPRAZOLE. [Concomitant]
     Active Substance: OMEPRAZOLE
  7. SYNTHROID [Concomitant]
     Active Substance: LEVOTHYROXINE SODIUM
  8. FUROSEMIDE. [Concomitant]
     Active Substance: FUROSEMIDE
  9. HYDRAZINE [Concomitant]
     Active Substance: HYDRAZINE SULFATE
  10. LATANOPROST. [Concomitant]
     Active Substance: LATANOPROST
  11. LIDOCAINE. [Concomitant]
     Active Substance: LIDOCAINE
  12. LASIX [Concomitant]
     Active Substance: FUROSEMIDE
  13. WARFARIN [Concomitant]
     Active Substance: WARFARIN
  14. APAP/CODEINE [CODEINE PHOSPHATE;PARACETAMOL] [Concomitant]
  15. XALATAN [Concomitant]
     Active Substance: LATANOPROST
  16. ATORVASTIN [Concomitant]
     Active Substance: ATORVASTATIN
  17. REMODULIN [Concomitant]
     Active Substance: TREPROSTINIL
  18. FEROSUL [Concomitant]
     Active Substance: FERROUS SULFATE
  19. MAGNESIUM [Concomitant]
     Active Substance: MAGNESIUM
  20. MIRTAZAPINE. [Concomitant]
     Active Substance: MIRTAZAPINE
  21. ALDACTONE [Concomitant]
     Active Substance: SPIRONOLACTONE
  22. METOPROLOL SUCCINATE. [Concomitant]
     Active Substance: METOPROLOL SUCCINATE
  23. ALPHAGAN P [Concomitant]
     Active Substance: BRIMONIDINE TARTRATE
  24. LEVOTHYROXINE. [Concomitant]
     Active Substance: LEVOTHYROXINE

REACTIONS (1)
  - Death [Fatal]

NARRATIVE: CASE EVENT DATE: 20210103
